FAERS Safety Report 11200941 (Version 1)
Quarter: 2015Q2

REPORT INFORMATION
  Report Type: Other
  Country: GB (occurrence: GB)
  Receive Date: 20150618
  Receipt Date: 20150618
  Transmission Date: 20150821
  Serious: Yes (Other)
  Sender: FDA-Public Use
  Company Number: GB-MYLANLABS-2015M1018969

PATIENT

DRUGS (5)
  1. CARBOMER [Concomitant]
     Active Substance: CARBOMER
     Dosage: USE AS DIRECTED.
     Dates: start: 20140402
  2. DOXAZOSIN [Concomitant]
     Active Substance: DOXAZOSIN\DOXAZOSIN MESYLATE
     Dosage: 1 DF, QD
     Dates: start: 20141027, end: 20150421
  3. NATRILIX                           /00340101/ [Concomitant]
     Dosage: 1 DF, QD (EACH MORNING)
     Dates: start: 20150501
  4. ATORVASTATIN [Suspect]
     Active Substance: ATORVASTATIN
     Dosage: UNK
     Route: 065
     Dates: start: 20150521
  5. ENALAPRIL [Concomitant]
     Active Substance: ENALAPRIL
     Dosage: 1 DF, BID
     Dates: start: 20141027

REACTIONS (4)
  - Vision blurred [Recovered/Resolved]
  - Paraesthesia [Recovered/Resolved]
  - Hyperhidrosis [Recovering/Resolving]
  - Arthralgia [Recovered/Resolved]

NARRATIVE: CASE EVENT DATE: 20150521
